FAERS Safety Report 6382345-1 (Version None)
Quarter: 2009Q3

REPORT INFORMATION
  Report Type: 
  Country: None (occurrence: None)
  Receive Date: 20090925
  Receipt Date: 20090914
  Transmission Date: 20100115
  Serious: Yes (Other)
  Sender: FDA-Public Use
  Company Number: 230796J09USA

PATIENT
  Age: 27 Year
  Sex: Female

DRUGS (6)
  1. REBIF [Suspect]
     Indication: MULTIPLE SCLEROSIS
     Dates: start: 20040101, end: 20050101
  2. REBIF [Suspect]
     Indication: MULTIPLE SCLEROSIS
     Dates: start: 20090720
  3. AMANTADINE HCL [Suspect]
  4. DETROL LA [Suspect]
  5. LEVOTHYROXINE (LEVOTHYROXINE /00068001) [Concomitant]
  6. CALCIUM        (CALCIUM-SANDOZ /00009901/) [Concomitant]

REACTIONS (4)
  - AMNIOTIC FLUID VOLUME DECREASED [None]
  - BREECH PRESENTATION [None]
  - DRUG EXPOSURE DURING PREGNANCY [None]
  - PREGNANCY [None]
